FAERS Safety Report 6218656-X (Version None)
Quarter: 2009Q2

REPORT INFORMATION
  Report Type: 
  Country: None (occurrence: None)
  Receive Date: 20090608
  Receipt Date: 20090528
  Transmission Date: 20091009
  Serious: Yes (Other)
  Sender: FDA-Public Use
  Company Number: US-JNJFOC-20090600568

PATIENT
  Sex: Male
  Weight: 77.7 kg

DRUGS (6)
  1. REMICADE [Suspect]
     Dosage: WEEK 0
     Route: 042
  2. REMICADE [Suspect]
     Indication: CROHN'S DISEASE
     Dosage: 3 DOSES
     Route: 042
  3. ASPIRIN [Concomitant]
  4. CALCIUM [Concomitant]
  5. MULTIPLE VITAMIN [Concomitant]
  6. FOLIC ACID [Concomitant]

REACTIONS (5)
  - BLISTER [None]
  - COLECTOMY [None]
  - DYSPHAGIA [None]
  - PRURITUS [None]
  - URTICARIA [None]
